FAERS Safety Report 6731776-6 (Version None)
Quarter: 2010Q2

REPORT INFORMATION
  Report Type: 
  Country: None (occurrence: None)
  Receive Date: 20100519
  Receipt Date: 20100510
  Transmission Date: 20101027
  Serious: Yes (Other)
  Sender: FDA-Public Use
  Company Number: US-PFIZER INC-2010059393

PATIENT
  Sex: Female
  Weight: 79.365 kg

DRUGS (2)
  1. ZOLOFT [Suspect]
     Indication: DEPRESSION
     Dosage: 100 MG, 1X/DAY
     Route: 048
     Dates: start: 20060101, end: 20100509
  2. SYNTHROID [Concomitant]
     Indication: GOITRE
     Dosage: UNK

REACTIONS (3)
  - ASTHMA [None]
  - DRUG INEFFECTIVE [None]
  - WHEEZING [None]
